FAERS Safety Report 5989028-8 (Version None)
Quarter: 2008Q4

REPORT INFORMATION
  Report Type: 
  Country: None (occurrence: None)
  Receive Date: 20081210
  Receipt Date: 20081204
  Transmission Date: 20090506
  Serious: Yes (Other)
  Sender: FDA-Public Use
  Company Number: B0548908A

PATIENT
  Age: 52 Year
  Sex: Female

DRUGS (1)
  1. REQUIP XL [Suspect]
     Indication: PARKINSON'S DISEASE
     Dosage: 4MG FIVE TIMES PER DAY
     Route: 048
     Dates: end: 20081202

REACTIONS (6)
  - DRUG DISPENSING ERROR [None]
  - DRUG PRESCRIBING ERROR [None]
  - MALAISE [None]
  - MUSCLE RIGIDITY [None]
  - PARKINSON'S DISEASE [None]
  - TREMOR [None]
